FAERS Safety Report 5381802-4 (Version None)
Quarter: 2007Q3

REPORT INFORMATION
  Report Type: 
  Country: None (occurrence: None)
  Receive Date: 20070705
  Receipt Date: 20070626
  Transmission Date: 20080115
  Serious: Yes (Hospitalization)
  Sender: FDA-Public Use
  Company Number: 235243K07USA

PATIENT
  Age: 58 Year
  Sex: Female
  Weight: 73.9363 kg

DRUGS (6)
  1. REBIF [Suspect]
     Indication: MULTIPLE SCLEROSIS
     Dosage: 44 MCG, 3 IN 1 WEEKS, SUBCUTANEOUS
     Route: 058
     Dates: start: 20041209
  2. DIOVAN [Concomitant]
  3. COUMADIN [Concomitant]
  4. ZOLOFT [Concomitant]
  5. VESICARE (SOIFENACIN) [Concomitant]
  6. ALLEGRA [Concomitant]

REACTIONS (4)
  - COLON CANCER [None]
  - LARGE INTESTINAL HAEMORRHAGE [None]
  - METASTASES TO LYMPH NODES [None]
  - RED BLOOD CELL COUNT DECREASED [None]
